FAERS Safety Report 11197417 (Version 1)
Quarter: 2015Q2

REPORT INFORMATION
  Report Type: Spontaneous
  Country: US (occurrence: US)
  Receive Date: 20150617
  Receipt Date: 20150617
  Transmission Date: 20150821
  Serious: Yes (Other)
  Sender: FDA-Public Use
  Company Number: US-TAKEDA-2015TUS006407

PATIENT
  Sex: Female

DRUGS (9)
  1. EVISTA [Concomitant]
     Active Substance: RALOXIFENE HYDROCHLORIDE
     Indication: BONE DISORDER
     Dosage: UNK
  2. TRAMADOL [Concomitant]
     Active Substance: TRAMADOL
     Dosage: UNK
  3. BRINTELLIX [Suspect]
     Active Substance: VORTIOXETINE HYDROBROMIDE
     Indication: DEPRESSION
     Dosage: 10 MG (SAMPLES), 1 TAB QD
     Route: 048
     Dates: start: 201505, end: 201505
  4. BRINTELLIX [Suspect]
     Active Substance: VORTIOXETINE HYDROBROMIDE
     Dosage: 5 MG, 1 TAB QD
     Route: 048
     Dates: start: 2015, end: 2015
  5. COREG [Concomitant]
     Active Substance: CARVEDILOL
     Indication: HYPERTENSION
     Dosage: UNK
  6. BRINTELLIX [Suspect]
     Active Substance: VORTIOXETINE HYDROBROMIDE
     Dosage: 10 MG (SAMPLES), 1 TAB QD
     Route: 048
     Dates: start: 2015, end: 2015
  7. BRINTELLIX [Suspect]
     Active Substance: VORTIOXETINE HYDROBROMIDE
     Dosage: 5 MG, 1 TAB QD
     Route: 048
     Dates: start: 2015
  8. CALCIUM [Concomitant]
     Active Substance: CALCIUM
     Dosage: UNK
  9. NEXIUM [Concomitant]
     Active Substance: ESOMEPRAZOLE MAGNESIUM
     Indication: GASTROOESOPHAGEAL REFLUX DISEASE
     Dosage: UNK

REACTIONS (18)
  - Multiple fractures [Unknown]
  - Impulsive behaviour [Unknown]
  - Fall [Unknown]
  - Constipation [Unknown]
  - Visual impairment [Unknown]
  - Eye pain [Unknown]
  - Vomiting [Unknown]
  - Decreased appetite [Unknown]
  - Hallucination [Unknown]
  - Initial insomnia [Unknown]
  - Tachyphrenia [Unknown]
  - Peripheral swelling [Unknown]
  - Affect lability [Unknown]
  - Epistaxis [Unknown]
  - Contusion [Recovered/Resolved]
  - Grandiosity [Unknown]
  - Nausea [Unknown]
  - Hypomania [Unknown]

NARRATIVE: CASE EVENT DATE: 2015
